FAERS Safety Report 5567187-9 (Version None)
Quarter: 2007Q4

REPORT INFORMATION
  Report Type: 
  Country: None (occurrence: None)
  Receive Date: 20071219
  Receipt Date: 20071212
  Transmission Date: 20080405
  Serious: Yes (Other)
  Sender: FDA-Public Use
  Company Number: US-ELI_LILLY_AND_COMPANY-US200712002729

PATIENT
  Age: 66 Year
  Sex: Male

DRUGS (3)
  1. HUMALOG MIX 75/25 [Suspect]
  2. HUMULIN 70/30 [Suspect]
  3. LANTUS [Concomitant]

REACTIONS (4)
  - AMNESIA [None]
  - BLOOD GLUCOSE DECREASED [None]
  - HAEMORRHAGE [None]
  - JAW FRACTURE [None]
